FAERS Safety Report 5806324-5 (Version None)
Quarter: 2008Q3

REPORT INFORMATION
  Report Type: 
  Country: None (occurrence: None)
  Receive Date: 20080702
  Receipt Date: 20070516
  Transmission Date: 20090109
  Serious: No
  Sender: FDA-Public Use
  Company Number: 2007-BP-04873BP

PATIENT
  Sex: Female

DRUGS (4)
  1. MIRAPEX [Suspect]
     Indication: RESTLESS LEGS SYNDROME
     Dosage: 0.25 MG (0.25 MG,1 IN 1 D)
     Dates: start: 20070308, end: 20070311
  2. EFFEXOR XR [Concomitant]
  3. XANAX [Concomitant]
  4. AMITRIPTLINE HYDROCHLORIDE TAB [Concomitant]

REACTIONS (7)
  - ANXIETY [None]
  - FEELING ABNORMAL [None]
  - FEELING JITTERY [None]
  - INSOMNIA [None]
  - IRRITABILITY [None]
  - PALPITATIONS [None]
  - RESTLESSNESS [None]
